FAERS Safety Report 25211685 (Version 1)
Quarter: 2025Q2

REPORT INFORMATION
  Report Type: Spontaneous
  Country: US (occurrence: US)
  Receive Date: 20250418
  Receipt Date: 20250418
  Transmission Date: 20250717
  Serious: Yes (Life-Threatening, Hospitalization)
  Sender: INDOCO REMEDIES LIMITED
  Company Number: US-MLMSERVICE-20250409-PI475217-00043-1

PATIENT
  Age: 68 Year
  Sex: Male

DRUGS (1)
  1. ALLOPURINOL [Suspect]
     Active Substance: ALLOPURINOL
     Indication: Gout
     Dosage: 300 MG DAILY
     Route: 065

REACTIONS (6)
  - Hyponatraemia [Recovering/Resolving]
  - Lactic acidosis [Recovering/Resolving]
  - Cellulitis [Recovering/Resolving]
  - Acute kidney injury [Recovering/Resolving]
  - Meningitis aseptic [Recovering/Resolving]
  - Agranulocytosis [Recovering/Resolving]
